FAERS Safety Report 8223379-1 (Version None)
Quarter: 2012Q1

REPORT INFORMATION
  Report Type: 
  Country: None (occurrence: None)
  Receive Date: 20120321
  Receipt Date: 20120307
  Transmission Date: 20120608
  Serious: Yes (Hospitalization, Other)
  Sender: FDA-Public Use
  Company Number: US-BAYER-201021600NA

PATIENT
  Age: 50 Year
  Sex: Female
  Weight: 59.41 kg

DRUGS (6)
  1. NASACORT [Concomitant]
  2. NSAID'S [Concomitant]
  3. RESPIRATORY SYSTEM [Concomitant]
  4. YASMIN [Suspect]
     Indication: MENSTRUATION IRREGULAR
     Dosage: UNK UNK, QD
     Route: 048
     Dates: start: 20050506, end: 20060223
  5. MULTI-VITAMIN [Concomitant]
     Dosage: ONCE A DAY
  6. CLARITIN [Concomitant]

REACTIONS (3)
  - PULMONARY EMBOLISM [None]
  - JUGULAR VEIN THROMBOSIS [None]
  - NECK PAIN [None]
